FAERS Safety Report 24670968 (Version 1)
Quarter: 2024Q4

REPORT INFORMATION
  Report Type: Report from Study
  Country: BR (occurrence: BR)
  Receive Date: 20241127
  Receipt Date: 20241127
  Transmission Date: 20250115
  Serious: Yes (Other)
  Sender: ABBVIE
  Company Number: BR-ABBVIE-6017838

PATIENT
  Age: 53 Year
  Sex: Female
  Weight: 72 kg

DRUGS (1)
  1. SKYRIZI [Suspect]
     Active Substance: RISANKIZUMAB-RZAA
     Indication: Psoriasis
     Dosage: FORM STRENGTH: 75 MG
     Route: 058
     Dates: start: 20210111

REACTIONS (4)
  - Pancreatic carcinoma [Not Recovered/Not Resolved]
  - Asthenia [Unknown]
  - Pancreatic duct obstruction [Unknown]
  - Gallbladder obstruction [Unknown]

NARRATIVE: CASE EVENT DATE: 20240101
